FAERS Safety Report 13974899 (Version 2)
Quarter: 2017Q4

REPORT INFORMATION
  Report Type: Spontaneous
  Country: US (occurrence: US)
  Receive Date: 20170915
  Receipt Date: 20171103
  Transmission Date: 20180321
  Serious: Yes (Other)
  Sender: FDA-Public Use
  Company Number: US-ASTRAZENECA-2017SE93187

PATIENT
  Age: 771 Month
  Sex: Male
  Weight: 78 kg

DRUGS (1)
  1. PULMICORT FLEXHALER [Suspect]
     Active Substance: BUDESONIDE
     Indication: CHRONIC OBSTRUCTIVE PULMONARY DISEASE
     Dosage: 90 MCG, ONE PUFF TWICE A DAY
     Route: 055
     Dates: start: 20170822

REACTIONS (8)
  - Oesophageal carcinoma [Unknown]
  - Asthma [Unknown]
  - Drug dose omission [Unknown]
  - Dyspnoea [Unknown]
  - Intentional device misuse [Unknown]
  - Product use issue [Unknown]
  - Product quality issue [Unknown]
  - Off label use [Unknown]

NARRATIVE: CASE EVENT DATE: 201708
